FAERS Safety Report 5343978-4 (Version None)
Quarter: 2007Q2

REPORT INFORMATION
  Report Type: 
  Country: None (occurrence: None)
  Receive Date: 20070604
  Receipt Date: 20070525
  Transmission Date: 20071010
  Serious: Yes (Death)
  Sender: FDA-Public Use
  Company Number: JP-AVENTIS-200711365JP

PATIENT
  Age: 64 Year
  Sex: Male
  Weight: 64.6 kg

DRUGS (2)
  1. TAXOTERE [Suspect]
  2. UFT                                /01071701/ [Concomitant]

REACTIONS (1)
  - INTERSTITIAL LUNG DISEASE [None]
